FAERS Safety Report 5452416-2 (Version None)
Quarter: 2007Q3

REPORT INFORMATION
  Report Type: 
  Country: None (occurrence: None)
  Receive Date: 20070914
  Receipt Date: 20070907
  Transmission Date: 20080115
  Serious: Yes (Hospitalization)
  Sender: FDA-Public Use
  Company Number: US-ELI_LILLY_AND_COMPANY-US200708001592

PATIENT
  Age: 42 Year
  Sex: Female
  Weight: 68.934 kg

DRUGS (6)
  1. LISPRO 25LIS75NPL [Suspect]
     Indication: TYPE 2 DIABETES MELLITUS
     Dosage: 36 IU, DAILY (1/D)
     Route: 058
     Dates: start: 20070602
  2. METFORMIN HCL [Concomitant]
     Indication: DIABETES MELLITUS
     Dates: start: 20050606
  3. GLYBURIDE [Concomitant]
     Indication: DIABETES MELLITUS
     Dates: start: 20050606
  4. ACTOS [Concomitant]
     Indication: DIABETES MELLITUS
     Dates: start: 20070602
  5. IRON [Concomitant]
     Indication: ANAEMIA
     Dates: start: 20061109
  6. ASPIRIN [Concomitant]
     Indication: PROPHYLAXIS
     Dates: start: 20061109

REACTIONS (1)
  - ENCEPHALITIS VIRAL [None]
